FAERS Safety Report 10715895 (Version 4)
Quarter: 2015Q1

REPORT INFORMATION
  Report Type: Spontaneous
  Country: GB (occurrence: GB)
  Receive Date: 20150116
  Receipt Date: 20150202
  Transmission Date: 20150721
  Serious: Yes (Other)
  Sender: FDA-Public Use
  Company Number: GB-009507513-1501GBR002372

PATIENT
  Age: 67 Year
  Sex: Female

DRUGS (3)
  1. SINEMET [Suspect]
     Active Substance: CARBIDOPA\LEVODOPA
     Indication: PARKINSON^S DISEASE
     Dosage: UNK
     Route: 048
  2. ROPINIROLE. [Concomitant]
     Active Substance: ROPINIROLE
     Indication: PARKINSON^S DISEASE
     Dosage: ABOUT 20 MG, QD
  3. ROPINIROLE. [Concomitant]
     Active Substance: ROPINIROLE
     Dosage: SOME 10 MG, QD

REACTIONS (8)
  - Dyskinesia [Unknown]
  - Dystonia [Unknown]
  - Hallucination [Unknown]
  - Deep brain stimulation [Unknown]
  - Cough [Unknown]
  - Product solubility abnormal [Unknown]
  - Sleep disorder [Unknown]
  - Wrong technique in drug usage process [Unknown]

NARRATIVE: CASE EVENT DATE: 201001
